FAERS Safety Report 4904747-X (Version None)
Quarter: 2006Q1

REPORT INFORMATION
  Report Type: 
  Country: None (occurrence: None)
  Receive Date: 20060208
  Receipt Date: 20050929
  Transmission Date: 20060701
  Serious: No
  Sender: FDA-Public Use
  Company Number: US-GLAXOSMITHKLINE-A0576376A

PATIENT
  Age: 47 Year
  Sex: Female

DRUGS (6)
  1. PAROXETINE HCL [Suspect]
     Indication: DEPRESSION
     Dosage: 40MG PER DAY
     Route: 048
  2. ZOCOR [Concomitant]
  3. FLONASE [Concomitant]
  4. LEVOXYL [Concomitant]
  5. PROVENTIL [Concomitant]
  6. LORAZEPAM [Concomitant]

REACTIONS (1)
  - DEPRESSION [None]
